FAERS Safety Report 7166886-5 (Version None)
Quarter: 2010Q4

REPORT INFORMATION
  Report Type: 
  Country: None (occurrence: None)
  Receive Date: 20101216
  Receipt Date: 20101208
  Transmission Date: 20110411
  Serious: Yes (Other)
  Sender: FDA-Public Use
  Company Number: IE-ROCHE-747392

PATIENT
  Age: 50 Year
  Sex: Male
  Weight: 140 kg

DRUGS (4)
  1. MIRCERA [Suspect]
     Dosage: DETAILS NOT REPORTED
     Route: 065
  2. MIRCERA [Suspect]
     Dosage: DOSE INCREASED
     Route: 065
  3. MIRCERA [Suspect]
     Dosage: DOSE INCREASED
     Route: 065
  4. MIRCERA [Suspect]
     Dosage: DOSE INCREASED
     Route: 065

REACTIONS (1)
  - DISEASE PROGRESSION [None]
